FAERS Safety Report 15526228 (Version 1)
Quarter: 2018Q4

REPORT INFORMATION
  Report Type: Spontaneous
  Country: GB (occurrence: GB)
  Receive Date: 20181018
  Receipt Date: 20181018
  Transmission Date: 20190205
  Serious: Yes (Hospitalization)
  Sender: FDA-Public Use
  Company Number: GB-BRISTOL-MYERS SQUIBB COMPANY-BMS-2018-095014

PATIENT
  Age: 61 Year
  Sex: Male
  Weight: 86.5 kg

DRUGS (3)
  1. GANFORT [Concomitant]
     Active Substance: BIMATOPROST\TIMOLOL
     Indication: PRODUCT USED FOR UNKNOWN INDICATION
     Dosage: UNK
     Route: 065
  2. IPILIMUMAB [Suspect]
     Active Substance: IPILIMUMAB
     Indication: METASTATIC OCULAR MELANOMA
     Dosage: 250 MG, UNK
     Route: 042
  3. NIVOLUMAB [Suspect]
     Active Substance: NIVOLUMAB
     Indication: METASTATIC OCULAR MELANOMA
     Dosage: 80 MG, UNK
     Route: 042

REACTIONS (6)
  - Hallucinations, mixed [Unknown]
  - Conjunctivitis [Recovering/Resolving]
  - Hyponatraemia [Not Recovered/Not Resolved]
  - Muscle spasms [Unknown]
  - Headache [Unknown]
  - Confusional state [Unknown]

NARRATIVE: CASE EVENT DATE: 20180924
